FAERS Safety Report 9085140 (Version 1)
Quarter: 2013Q1

REPORT INFORMATION
  Report Type: Report from Study
  Country: US (occurrence: US)
  Receive Date: 20130131
  Receipt Date: 20130131
  Transmission Date: 20140127
  Serious: No
  Sender: FDA-Public Use
  Company Number: US-ABBOTT-12P-163-1014664-00

PATIENT
  Age: 36 Year
  Sex: Female

DRUGS (7)
  1. HUMIRA [Suspect]
     Indication: PSORIATIC ARTHROPATHY
     Dates: start: 20121126
  2. DICYCLOMINE [Concomitant]
     Indication: IRRITABLE BOWEL SYNDROME
  3. MEDROL [Concomitant]
     Indication: EYE DISORDER
     Dosage: 12 MG DAILY
  4. CELEXA [Concomitant]
     Indication: DEPRESSION
     Dosage: 20 MG DAILY
  5. MELATONIN [Concomitant]
     Indication: INSOMNIA
     Dosage: AT BEDTIME
  6. XANAX [Concomitant]
     Indication: INSOMNIA
     Dosage: AT BEDTIME
  7. MULTIVITAMIN [Concomitant]
     Indication: VITAMIN SUPPLEMENTATION
     Dosage: EVERY DAY

REACTIONS (3)
  - Feeling abnormal [Recovered/Resolved]
  - Eye irritation [Recovered/Resolved]
  - Lacrimation increased [Recovered/Resolved]
